FAERS Safety Report 6329015-3 (Version None)
Quarter: 2009Q3

REPORT INFORMATION
  Report Type: 
  Country: None (occurrence: None)
  Receive Date: 20090826
  Receipt Date: 20090817
  Transmission Date: 20100115
  Serious: Yes (Other)
  Sender: FDA-Public Use
  Company Number: US-JNJFOC-20090506296

PATIENT
  Sex: Female
  Weight: 72.58 kg

DRUGS (7)
  1. REMICADE [Suspect]
     Route: 042
  2. REMICADE [Suspect]
     Indication: ARTHRALGIA
     Route: 042
  3. REMICADE [Suspect]
     Indication: CROHN'S DISEASE
     Route: 042
  4. PREDNISONE [Concomitant]
  5. PREVACID [Concomitant]
  6. PROZAC [Concomitant]
  7. ASPIRIN [Concomitant]

REACTIONS (2)
  - HERPES ZOSTER [None]
  - LUPUS-LIKE SYNDROME [None]
